FAERS Safety Report 7125956-8 (Version None)
Quarter: 2010Q4

REPORT INFORMATION
  Report Type: 
  Country: None (occurrence: None)
  Receive Date: 20101112
  Receipt Date: 20101026
  Transmission Date: 20110411
  Serious: Yes (Hospitalization)
  Sender: FDA-Public Use
  Company Number: AUR-APL-2010-02710

PATIENT
  Age: 63 Year
  Sex: Male
  Weight: 122.7 kg

DRUGS (9)
  1. AMLODIPINE [Suspect]
     Dosage: 10MG
  2. ATENOLOL [Suspect]
  3. RAMIPRIL [Suspect]
     Dosage: 7.5MG
  4. EXENATIDE [Suspect]
     Indication: TYPE 2 DIABETES MELLITUS
     Dosage: 10MCG - BID
  5. IRBESARTAN [Suspect]
     Dosage: 150MG
  6. LEVEMIR [Concomitant]
  7. METFORMIN [Concomitant]
  8. GLICLAZIDE [Concomitant]
  9. FRUSEMIDE [Concomitant]

REACTIONS (4)
  - DEHYDRATION [None]
  - HYPOTENSION [None]
  - RENAL FAILURE ACUTE [None]
  - WEIGHT DECREASED [None]
